FAERS Safety Report 8190452-6 (Version None)
Quarter: 2012Q1

REPORT INFORMATION
  Report Type: 
  Country: None (occurrence: None)
  Receive Date: 20120307
  Receipt Date: 20120229
  Transmission Date: 20120608
  Serious: Yes (Death, Hospitalization, Other)
  Sender: FDA-Public Use
  Company Number: US-BAYER-200937668NA

PATIENT
  Age: 75 Year
  Sex: Female
  Weight: 69 kg

DRUGS (18)
  1. TRASYLOL [Suspect]
     Indication: PHLEBECTOMY
  2. POTASSIUM CHLORIDE [Concomitant]
     Dosage: UNK
     Route: 042
     Dates: start: 20040804
  3. TRASYLOL [Suspect]
     Indication: CORONARY ARTERY BYPASS
     Dosage: 1 ML INITIAL TEST DOSE
     Route: 042
     Dates: start: 20040804
  4. RED BLOOD CELLS [Concomitant]
     Dosage: 10 UNITS
     Route: 042
     Dates: start: 20040804
  5. HYDROCHLOROTHIAZIDE [Concomitant]
     Dosage: UNK
     Route: 048
     Dates: start: 20010309
  6. REOPRO [Concomitant]
     Dosage: UNK
     Route: 042
     Dates: start: 20040803
  7. LASIX [Concomitant]
     Dosage: 40 MG
     Route: 042
     Dates: start: 20040804
  8. CEFUROXIME [Concomitant]
     Dosage: 1.5 GRAM
     Route: 042
     Dates: start: 20040804
  9. MILRINONE [Concomitant]
     Dosage: UNK
     Route: 042
     Dates: start: 20040804
  10. DOPAMINE HCL [Concomitant]
     Dosage: UNK
     Route: 042
     Dates: start: 20040804
  11. DIOVAN [Concomitant]
     Dosage: UNK
     Route: 048
     Dates: start: 20020807
  12. PROTAMINE SULFATE [Concomitant]
     Dosage: UNK
     Dates: start: 20040804, end: 20040804
  13. PRIMACOR [Concomitant]
     Dosage: UNK
     Dates: start: 20040804, end: 20040804
  14. TRASYLOL [Suspect]
     Indication: SWAN GANZ CATHETER PLACEMENT
     Dosage: INFUSION OF 50 CC/HOUR
     Route: 042
     Dates: start: 20040804
  15. RED BLOOD CELLS [Concomitant]
     Dosage: 2 UNITS
     Route: 042
     Dates: start: 20040804
  16. ASPIRIN [Concomitant]
     Route: 048
  17. HEPARIN [Concomitant]
     Dosage: UNK
     Route: 042
     Dates: start: 20040803
  18. FENTANYL [Concomitant]
     Dosage: 30 CC
     Route: 042
     Dates: start: 20040804

REACTIONS (14)
  - FEAR [None]
  - HEPATIC FAILURE [None]
  - PAIN [None]
  - DEFORMITY [None]
  - RESPIRATORY DISTRESS [None]
  - DEPRESSION [None]
  - ENCEPHALOPATHY [None]
  - CHOLELITHIASIS [None]
  - INJURY [None]
  - DEATH [None]
  - ANXIETY [None]
  - ANHEDONIA [None]
  - UNEVALUABLE EVENT [None]
  - RENAL FAILURE [None]
